FAERS Safety Report 16332759 (Version 2)
Quarter: 2019Q2

REPORT INFORMATION
  Report Type: Spontaneous
  Country: US (occurrence: US)
  Receive Date: 20190520
  Receipt Date: 20190626
  Transmission Date: 20190711
  Serious: No
  Sender: FDA-Public Use
  Company Number: US-PFIZER INC-2019210314

PATIENT
  Age: 64 Year
  Sex: Male
  Weight: 88.45 kg

DRUGS (4)
  1. FELDENE [Suspect]
     Active Substance: PIROXICAM
     Dosage: UNK
     Dates: start: 20190523
  2. FELDENE [Suspect]
     Active Substance: PIROXICAM
     Indication: ARTHRITIS
     Dosage: 20 MG, 1X/DAY
     Route: 048
     Dates: start: 201905
  3. MOTRIN [Concomitant]
     Active Substance: IBUPROFEN
     Dosage: 800 MG,  2 TO 3 TIMES A DAY
     Dates: start: 20190415, end: 20190523
  4. FELDENE [Suspect]
     Active Substance: PIROXICAM
     Indication: ARTHRALGIA
     Dosage: 20 MG, 2X/DAY
     Dates: end: 20190515

REACTIONS (2)
  - Drug ineffective [Recovered/Resolved]
  - Arthropathy [Recovered/Resolved]

NARRATIVE: CASE EVENT DATE: 2019
